FAERS Safety Report 19467046 (Version 1)
Quarter: 2021Q2

REPORT INFORMATION
  Report Type: Spontaneous
  Country: US (occurrence: US)
  Receive Date: 20210628
  Receipt Date: 20210628
  Transmission Date: 20210717
  Serious: Yes (Other)
  Sender: FDA-Public Use
  Company Number: US-DRREDDYS-SPO/USA/21/0136858

PATIENT
  Age: 58 Year
  Sex: Male
  Weight: 90.72 kg

DRUGS (1)
  1. TESTOSTERONE INJECTABLE SUSPENSION [Suspect]
     Active Substance: TESTOSTERONE
     Indication: PRODUCT USED FOR UNKNOWN INDICATION

REACTIONS (5)
  - Arrhythmia [Unknown]
  - Tongue disorder [Not Recovered/Not Resolved]
  - Arthralgia [Not Recovered/Not Resolved]
  - Hypothyroidism [Unknown]
  - Taste disorder [Not Recovered/Not Resolved]
